FAERS Safety Report 11773710 (Version 1)
Quarter: 2015Q4

REPORT INFORMATION
  Report Type: Spontaneous
  Country: US (occurrence: US)
  Receive Date: 20151124
  Receipt Date: 20151124
  Transmission Date: 20160304
  Serious: Yes (Other)
  Sender: FDA-Public Use
  Company Number: US-BAYER-2015-472750

PATIENT
  Age: 70 Year
  Sex: Female
  Weight: 55.78 kg

DRUGS (6)
  1. CITRACAL MAXIMUM [Concomitant]
     Active Substance: CALCIUM CITRATE\CHOLECALCIFEROL
     Indication: VITAMIN SUPPLEMENTATION
  2. PHENOBARBITAL. [Concomitant]
     Active Substance: PHENOBARBITAL
  3. MIRALAX [Suspect]
     Active Substance: POLYETHYLENE GLYCOL 3350
     Indication: IRRITABLE BOWEL SYNDROME
     Dosage: 1 DF, QOD
     Route: 048
     Dates: start: 2008
  4. THYROXINE [Concomitant]
     Active Substance: LEVOTHYROXINE
  5. FISH OIL [Concomitant]
     Active Substance: FISH OIL
  6. ONE A DAY WOMEN^S 50+ HEALTHY ADVANTAGE [Concomitant]
     Active Substance: VITAMINS
     Indication: VITAMIN SUPPLEMENTATION

REACTIONS (6)
  - Irritable bowel syndrome [None]
  - Arthritis [None]
  - Off label use [None]
  - CREST syndrome [None]
  - Gastrooesophageal reflux disease [None]
  - Product use issue [None]

NARRATIVE: CASE EVENT DATE: 2008
